FAERS Safety Report 13376727 (Version 1)
Quarter: 2017Q1

REPORT INFORMATION
  Report Type: Spontaneous
  Country: US (occurrence: US)
  Receive Date: 20170327
  Receipt Date: 20170327
  Transmission Date: 20170429
  Serious: Yes (Disabling)
  Sender: FDA-Public Use
  Company Number: None

PATIENT
  Age: 51 Year
  Sex: Female
  Weight: 76.5 kg

DRUGS (4)
  1. LEVOTHYROXINE. [Concomitant]
     Active Substance: LEVOTHYROXINE
  2. VITAMIN D [Concomitant]
     Active Substance: CHOLECALCIFEROL
  3. CPAP [Concomitant]
     Active Substance: DEVICE
  4. ROSUVASTATIN 10MG [Suspect]
     Active Substance: ROSUVASTATIN
     Indication: BLOOD CHOLESTEROL INCREASED
     Route: 048
     Dates: start: 20170125, end: 20170203

REACTIONS (12)
  - Hypoaesthesia [None]
  - Joint stiffness [None]
  - Gait disturbance [None]
  - Dysstasia [None]
  - Muscle tightness [None]
  - Feeling abnormal [None]
  - Drug ineffective [None]
  - Urinary incontinence [None]
  - Anal incontinence [None]
  - Constipation [None]
  - Balance disorder [None]
  - Dizziness [None]

NARRATIVE: CASE EVENT DATE: 20170203
